FAERS Safety Report 21493854 (Version 1)
Quarter: 2022Q4

REPORT INFORMATION
  Report Type: Report from Study
  Country: US (occurrence: US)
  Receive Date: 20221021
  Receipt Date: 20221021
  Transmission Date: 20230112
  Serious: Yes (Hospitalization)
  Sender: FDA-Public Use
  Company Number: US-PFIZER INC-202201243844

PATIENT
  Age: 65 Year
  Sex: Female

DRUGS (13)
  1. INOTUZUMAB OZOGAMICIN [Suspect]
     Active Substance: INOTUZUMAB OZOGAMICIN
     Indication: Acute lymphocytic leukaemia
     Dosage: REGIMEN A: OVER 1 HOUR ON DAYS 2 AND 8 OF CYCLES 1 AND 3 (APPROXIMATE)
     Route: 042
     Dates: start: 20220814
  2. INOTUZUMAB OZOGAMICIN [Suspect]
     Active Substance: INOTUZUMAB OZOGAMICIN
     Dosage: REGIMEN B: DAYS 2 AND 8 OF CYCLES 2 AND 4 (APPROXIMATE)
     Route: 042
  3. PEGFILGRASTIM [Suspect]
     Active Substance: PEGFILGRASTIM
     Dosage: REGIMEN A: (OR FILGRASTIM 5-10 MCG/KG DAILY) ON DAY 4 UNTIL RECOVERY OF GRANULOCYTE COUNT
     Route: 058
  4. PEGFILGRASTIM [Suspect]
     Active Substance: PEGFILGRASTIM
     Dosage: REGIMEN B:(OR FILGRASTIM 5-10 MCG/KG DAILY) ON DAY 4 UNTIL RECOVERY OF GRANULOCYTE COUNT
     Route: 058
  5. METHOTREXATE SODIUM [Suspect]
     Active Substance: METHOTREXATE SODIUM
     Dosage: REGIMEN B: OVER 2HRS ON DAY 1 THEN
     Route: 042
  6. METHOTREXATE SODIUM [Suspect]
     Active Substance: METHOTREXATE SODIUM
     Dosage: REGIMEN B: CONTINUOUS INFUSION OVER 22 HOURS ON DAY 1
     Route: 042
  7. RITUXIMAB [Suspect]
     Active Substance: RITUXIMAB
     Dosage: REGIMEN A: ON DAY 2 AND DAY 8 OF CYCLES 1 AND 3
     Route: 042
  8. RITUXIMAB [Suspect]
     Active Substance: RITUXIMAB
     Dosage: REGIMEN B: ON DAY 2 AND 8 OF CYCLES 2 AND 4.
     Route: 042
  9. VINCRISTINE SULFATE [Suspect]
     Active Substance: VINCRISTINE SULFATE
     Dosage: REGIMEN A: DAY 1 AND DAY 8 (APPROXIMATE)
     Route: 042
  10. CYTARABINE [Suspect]
     Active Substance: CYTARABINE
     Dosage: REGIMEN B: OVER 3 HOURS TWICE A DAY X 4 DOSES ON DAYS 2 AND 3
     Route: 042
  11. CYCLOPHOSPHAMIDE [Suspect]
     Active Substance: CYCLOPHOSPHAMIDE
     Dosage: REGIMEN A: OVER 3 HOURS TWICE A DAY ON DAYS 1-3
     Route: 042
  12. DEXAMETHASONE [Suspect]
     Active Substance: DEXAMETHASONE
     Dosage: REGIMEN A:DAILY FOR 4 DAYS ON DAYS 1-4 AND DAYS 11-14 (APPROXIMATE)
     Route: 042
  13. MESNA [Suspect]
     Active Substance: MESNA
     Dosage: REGIMEN A: DAILY OVER 24 HOURS FOR 3 DAYS ON DAYS 1-3
     Route: 042

REACTIONS (1)
  - Anaemia [Recovered/Resolved]

NARRATIVE: CASE EVENT DATE: 20220922
